FAERS Safety Report 15758554 (Version 2)
Quarter: 2018Q4

REPORT INFORMATION
  Report Type: Spontaneous
  Country: TR (occurrence: TR)
  Receive Date: 20181225
  Receipt Date: 20181228
  Transmission Date: 20190205
  Serious: Yes (Other)
  Sender: FDA-Public Use
  Company Number: PHHY2018TR192648

PATIENT

DRUGS (17)
  1. METHOTREXATE. [Suspect]
     Active Substance: METHOTREXATE
     Indication: ACUTE LYMPHOCYTIC LEUKAEMIA
     Dosage: 3000 MG/M2, ON DAY 1 AT WEEK 7-8, 11-12, 19-20, 23-24, UNK
     Route: 042
  2. DAUNORUBICIN [Suspect]
     Active Substance: DAUNORUBICIN
     Indication: ACUTE LYMPHOCYTIC LEUKAEMIA
     Dosage: 30 MG/M2, ON DAYS 1, 8, 15 AND 22 AT WEEKS 1-6, UNK
     Route: 042
  3. ASPARAGINASE [Suspect]
     Active Substance: ASPARAGINASE
     Dosage: 25000 IU/M2, AT DAY 5 OF WEEK 7-8, 11-12, 15-16, 19-20, 23-24, 27-28, UNK
     Route: 042
  4. DEXAMETHASONE. [Suspect]
     Active Substance: DEXAMETHASONE
     Indication: ACUTE LYMPHOCYTIC LEUKAEMIA
     Dosage: 20 MG/M2, AT DAYS 1-5 THEN TAPERED 6-8 AT WEEKS 7-8, 11-12, 15-16, 19-20, 23-24, 27-28, UNK
     Route: 042
  5. MERCAPTOPURINE. [Suspect]
     Active Substance: MERCAPTOPURINE
     Indication: ACUTE LYMPHOCYTIC LEUKAEMIA
     Dosage: 100 MG/M2, ON DAYS 1-5 AT WEEKS 7-8, 19-20, UNK
     Route: 042
  6. CYTARABINE. [Suspect]
     Active Substance: CYTARABINE
     Indication: ACUTE LYMPHOCYTIC LEUKAEMIA
     Dosage: 2000 MG/M2, AT DAY 5 OF WEEKS 7-8, UNK
     Route: 042
  7. VINCRISTINE [Suspect]
     Active Substance: VINCRISTINE
     Dosage: 2 MG, AT DAYS 1, 8 AT WEEKS 7-8, 11-12, 19-20, AND 23-24, UNK
     Route: 042
  8. TENIPOSIDE. [Suspect]
     Active Substance: TENIPOSIDE
     Indication: ACUTE LYMPHOCYTIC LEUKAEMIA
     Dosage: 150 MG/M2, AT DAYS 3-4 OF WEEKS 15-16, 27-28, UNK
     Route: 042
  9. MITOXANTRONE [Suspect]
     Active Substance: MITOXANTRONE HYDROCHLORIDE
     Indication: ACUTE LYMPHOCYTIC LEUKAEMIA
     Dosage: 12 MG/M2, AT DAY 5 OF WEEKS 11-12, 23-24, UNK
     Route: 042
  10. VINCRISTINE [Suspect]
     Active Substance: VINCRISTINE
     Indication: ACUTE LYMPHOCYTIC LEUKAEMIA
     Dosage: 2 MG, AT DAYS 1, 8, 15 AND 22 AT WEEKS 1-6, UNK
     Route: 042
  11. ACYCLOVIR. [Concomitant]
     Active Substance: ACYCLOVIR
     Indication: PRODUCT USED FOR UNKNOWN INDICATION
     Dosage: UNK
     Route: 065
  12. ASPARAGINASE [Suspect]
     Active Substance: ASPARAGINASE
     Indication: ACUTE LYMPHOCYTIC LEUKAEMIA
     Dosage: 10000 IU/M2, ON DAYS 16-20, 23-27 AT WEEKS 1-6, UNK
     Route: 042
  13. GRANULOCYTE COLONY STIMULATING FACTOR [Concomitant]
     Active Substance: GRANULOCYTE COLONY-STIMULATING FACTOR NOS
     Indication: PRODUCT USED FOR UNKNOWN INDICATION
     Dosage: UNK
     Route: 065
  14. CYCLOPHOSPHAMIDE. [Suspect]
     Active Substance: CYCLOPHOSPHAMIDE
     Indication: ACUTE LYMPHOCYTIC LEUKAEMIA
     Dosage: 1000 MG/M2, AT DAY 36 FROM WEEKS 1-6, UNK
     Route: 042
  15. PREDNISONE. [Suspect]
     Active Substance: PREDNISONE
     Indication: ACUTE LYMPHOCYTIC LEUKAEMIA
     Dosage: 60 MG/M2, ON 1-28, 29-33, 34-38 DAYS OF WEEKS 1-6, UNK
     Route: 065
  16. CYCLOPHOSPHAMIDE. [Suspect]
     Active Substance: CYCLOPHOSPHAMIDE
     Dosage: 150 MG/M2, AT DAYS 1-5 OF WEEKS 11-12, 23-24, UNK
     Route: 042
  17. CYTARABINE. [Suspect]
     Active Substance: CYTARABINE
     Dosage: 2000 MG/M2, BID AT DAYS 1, 2 OF WEEKS 15-16, 19-20, 27-28, UNK
     Route: 042

REACTIONS (1)
  - Hypersensitivity [Unknown]
